FAERS Safety Report 5847376-6 (Version None)
Quarter: 2008Q3

REPORT INFORMATION
  Report Type: 
  Country: None (occurrence: None)
  Receive Date: 20080813
  Receipt Date: 20080728
  Transmission Date: 20090109
  Serious: Yes (Other)
  Sender: FDA-Public Use
  Company Number: IDA-00112

PATIENT
  Age: 41 Year
  Sex: Female

DRUGS (1)
  1. INDERAL [Suspect]
     Dosage: ORAL, TABLET
     Route: 048

REACTIONS (1)
  - DISSEMINATED INTRAVASCULAR COAGULATION [None]
